FAERS Safety Report 6517665-0 (Version None)
Quarter: 2009Q4

REPORT INFORMATION
  Report Type: 
  Country: None (occurrence: None)
  Receive Date: 20091224
  Receipt Date: 20091207
  Transmission Date: 20100525
  Serious: Yes (Other)
  Sender: FDA-Public Use
  Company Number: US-SANOFI-AVENTIS-2009SA010128

PATIENT
  Age: 61 Year
  Sex: Female

DRUGS (3)
  1. SOLOSTAR [Suspect]
     Route: 058
     Dates: start: 20090701
  2. LANTUS [Suspect]
     Indication: TYPE 2 DIABETES MELLITUS
     Dosage: 22-28 UNITS
     Route: 058
     Dates: start: 20090701
  3. PREDNISONE [Suspect]
     Dates: start: 20090101

REACTIONS (2)
  - BLOOD GLUCOSE INCREASED [None]
  - DEVICE MALFUNCTION [None]
